FAERS Safety Report 12601573 (Version 7)
Quarter: 2017Q3

REPORT INFORMATION
  Report Type: Spontaneous
  Country: US (occurrence: US)
  Receive Date: 20160728
  Receipt Date: 20170721
  Transmission Date: 20171127
  Serious: Yes (Death, Congenital Anomaly, Other)
  Sender: FDA-Public Use
  Company Number: PHHY2015US128030

PATIENT
  Sex: Male

DRUGS (3)
  1. ONDANSETRON HYDROCHLORIDE. [Suspect]
     Active Substance: ONDANSETRON HYDROCHLORIDE
     Indication: FOETAL EXPOSURE DURING PREGNANCY
     Dosage: MOTHER^S DOSE: 4 MG, QD
     Route: 064
  2. ZOFRAN [Suspect]
     Active Substance: ONDANSETRON HYDROCHLORIDE
     Indication: FOETAL EXPOSURE DURING PREGNANCY
     Dosage: MOTHER DOSE: 4 MG / 2 ML UNK
     Route: 064
  3. ONDANSETRON [Suspect]
     Active Substance: ONDANSETRON
     Indication: FOETAL EXPOSURE DURING PREGNANCY
     Dosage: MOTHER^S DOSE: 4 MG, UNK
     Route: 064

REACTIONS (8)
  - Heart disease congenital [Fatal]
  - Ventricular septal defect [Unknown]
  - Foetal exposure during pregnancy [Unknown]
  - Cardiac failure [Fatal]
  - Patent ductus arteriosus [Unknown]
  - Hypoplastic right heart syndrome [Fatal]
  - Respiratory distress [Unknown]
  - Congenital pulmonary valve atresia [Unknown]
